FAERS Safety Report 5506917-9 (Version None)
Quarter: 2007Q4

REPORT INFORMATION
  Report Type: 
  Country: None (occurrence: None)
  Receive Date: 20071105
  Receipt Date: 20071024
  Transmission Date: 20080405
  Serious: Yes (Other)
  Sender: FDA-Public Use
  Company Number: AU-PFIZER INC-2007089748

PATIENT
  Sex: Male

DRUGS (1)
  1. XANAX [Suspect]
     Indication: PANIC ATTACK

REACTIONS (1)
  - OSTEOPOROSIS [None]
